FAERS Safety Report 7157320-X (Version None)
Quarter: 2010Q4

REPORT INFORMATION
  Report Type: 
  Country: None (occurrence: None)
  Receive Date: 20101214
  Receipt Date: 20101129
  Transmission Date: 20110411
  Serious: No
  Sender: FDA-Public Use
  Company Number: US-PFIZER INC-2010161884

PATIENT
  Age: 33 Year
  Sex: Female
  Weight: 63 kg

DRUGS (2)
  1. ADVIL CONGESTION RELIEF [Suspect]
     Indication: SINUS HEADACHE
     Dosage: 1 DF, 2X/DAY
     Dates: start: 20101123, end: 20101128
  2. MULTI-VITAMINS [Concomitant]

REACTIONS (3)
  - CONDITION AGGRAVATED [None]
  - SINUSITIS [None]
  - UPPER RESPIRATORY TRACT CONGESTION [None]
